FAERS Safety Report 7052357-3 (Version None)
Quarter: 2010Q4

REPORT INFORMATION
  Report Type: 
  Country: None (occurrence: None)
  Receive Date: 20101014
  Receipt Date: 20101001
  Transmission Date: 20110411
  Serious: Yes (Hospitalization, Other)
  Sender: FDA-Public Use
  Company Number: 018236

PATIENT
  Sex: Male

DRUGS (9)
  1. CIMZIA [Suspect]
     Indication: COLITIS ULCERATIVE
     Dosage: 400 MG 1X/4 WEEKS SUBCUTANEOUS
     Route: 058
     Dates: start: 20090618, end: 20100827
  2. LORTAB [Concomitant]
  3. LEVEMIR [Concomitant]
  4. NOVOLOG [Concomitant]
  5. MEDROL [Concomitant]
  6. ULTRACET [Concomitant]
  7. FLEXERIL [Concomitant]
  8. LYRICA [Concomitant]
  9. UNKNOWN [Concomitant]

REACTIONS (1)
  - OESOPHAGEAL ADENOCARCINOMA [None]
